FAERS Safety Report 10598422 (Version 1)
Quarter: 2014Q4

REPORT INFORMATION
  Report Type: Spontaneous
  Country: FR (occurrence: None)
  Receive Date: 20141119
  Receipt Date: 20141119
  Transmission Date: 20150529
  Serious: Yes (Hospitalization)
  Sender: FDA-Public Use
  Company Number: 2621315

PATIENT
  Age: 72 Year
  Sex: Female

DRUGS (11)
  1. CISPLATINE [Suspect]
     Active Substance: CISPLATIN
     Indication: CHEMOTHERAPY
     Route: 042
     Dates: start: 20140604, end: 20140606
  2. DEROXAT [Concomitant]
     Active Substance: PAROXETINE HYDROCHLORIDE
  3. CARBOPLATIN. [Suspect]
     Active Substance: CARBOPLATIN
     Indication: CHEMOTHERAPY
     Route: 042
     Dates: start: 20140523
  4. LANTUS [Concomitant]
     Active Substance: INSULIN GLARGINE
  5. REPAGLINIDE. [Concomitant]
     Active Substance: REPAGLINIDE
  6. RAMIPRIL. [Concomitant]
     Active Substance: RAMIPRIL
  7. NEBILOX [Concomitant]
     Active Substance: NEBIVOLOL HYDROCHLORIDE
  8. INNOHEP [Concomitant]
     Active Substance: TINZAPARIN SODIUM
  9. ETOPOSIDE. [Concomitant]
     Active Substance: ETOPOSIDE
  10. TERCIAN [Concomitant]
     Active Substance: CYAMEMAZINE
  11. FUROSEMIDE. [Concomitant]
     Active Substance: FUROSEMIDE

REACTIONS (3)
  - Leukoencephalopathy [None]
  - Blindness [None]
  - Blood creatinine increased [None]

NARRATIVE: CASE EVENT DATE: 20140728
